FAERS Safety Report 6818527-1 (Version None)
Quarter: 2010Q3

REPORT INFORMATION
  Report Type: 
  Country: None (occurrence: None)
  Receive Date: 20100706
  Receipt Date: 20080617
  Transmission Date: 20110219
  Serious: No
  Sender: FDA-Public Use
  Company Number: US-PFIZER INC-2008051127

PATIENT
  Sex: Male
  Weight: 16.78 kg

DRUGS (3)
  1. ZITHROMAX (PED ORAL SUSP) [Suspect]
     Indication: RESPIRATORY TRACT INFECTION
     Dates: start: 20080418, end: 20080422
  2. LEVOSALBUTAMOL [Suspect]
     Indication: DYSPNOEA
     Route: 055
     Dates: start: 20070101
  3. MONTELUKAST SODIUM [Concomitant]

REACTIONS (1)
  - PRURITUS [None]
